FAERS Safety Report 7003740-3 (Version None)
Quarter: 2010Q3

REPORT INFORMATION
  Report Type: 
  Country: None (occurrence: None)
  Receive Date: 20100920
  Receipt Date: 20090820
  Transmission Date: 20110219
  Serious: No
  Sender: FDA-Public Use
  Company Number: US-WYE-H10673409

PATIENT
  Sex: Female

DRUGS (2)
  1. PROTONIX [Suspect]
     Indication: ABDOMINAL DISCOMFORT
     Route: 048
     Dates: start: 20090812, end: 20090812
  2. PROTONIX [Suspect]
     Indication: BURNING SENSATION

REACTIONS (3)
  - ABDOMINAL DISTENSION [None]
  - HYPERSENSITIVITY [None]
  - PAIN [None]
